FAERS Safety Report 9127103 (Version 1)
Quarter: 2013Q1

REPORT INFORMATION
  Report Type: Spontaneous
  Country: US (occurrence: US)
  Receive Date: 20130122
  Receipt Date: 20130122
  Transmission Date: 20140127
  Serious: No
  Sender: FDA-Public Use
  Company Number: US-MYLANLABS-2012S1005159

PATIENT
  Age: 61 Year
  Sex: Female

DRUGS (15)
  1. FEMARA [Suspect]
     Indication: BREAST CANCER
     Route: 048
     Dates: start: 200907
  2. LETROZOLE [Suspect]
     Indication: BREAST CANCER
     Route: 048
  3. LETROZOLE [Suspect]
     Indication: BREAST CANCER
     Route: 048
  4. FUROSEMIDE [Concomitant]
     Route: 048
  5. LISINOPRIL [Concomitant]
     Route: 048
  6. METFORMIN [Concomitant]
     Route: 048
  7. HYDROCODONE AND APAP [Concomitant]
     Indication: PAIN
     Dosage: 5MG/325MG; EVERY SIX HOURS
     Route: 048
  8. TYLENOL [Concomitant]
     Indication: PAIN
     Dosage: EVERY EIGHT HOURS
     Route: 048
  9. VITAMIN D [Concomitant]
     Route: 048
  10. VIACTIV CALCIUM PLUS VITAMIN D + K [Concomitant]
     Route: 048
  11. PSEUDOEPHEDRINE [Concomitant]
     Indication: SINUS CONGESTION
     Dosage: EVERY SIX HOURS
     Route: 048
  12. SENOKOT [Concomitant]
     Indication: CONSTIPATION
     Dosage: 34.4MG PER TABLET
     Route: 048
  13. DIPHENHYDRAMINE [Concomitant]
     Indication: URTICARIA
     Route: 048
  14. CARBOXYMETHYLCELLULOSE SODIUM [Concomitant]
     Indication: EYE LUBRICATION THERAPY
     Route: 047
  15. SIMETHICON [Concomitant]
     Indication: FLATULENCE

REACTIONS (2)
  - Pruritus [Not Recovered/Not Resolved]
  - Pruritus generalised [Not Recovered/Not Resolved]
